FAERS Safety Report 5096778-7 (Version None)
Quarter: 2006Q3

REPORT INFORMATION
  Report Type: 
  Country: None (occurrence: None)
  Receive Date: 20060831
  Receipt Date: 20060823
  Transmission Date: 20061208
  Serious: Yes (Other)
  Sender: FDA-Public Use
  Company Number: 2006103185

PATIENT
  Sex: Female

DRUGS (7)
  1. LIPITOR [Suspect]
     Indication: DRUG USE FOR UNKNOWN INDICATION
     Dosage: ORAL
     Route: 048
  2. ACETYLSALICYLIC ACID [Concomitant]
  3. LISINOPRIL [Concomitant]
  4. PANTOPRAZOLE SODIUM [Concomitant]
  5. CLONAZEPAM [Concomitant]
  6. SERTRALINE [Concomitant]
  7. AMITRIPTYLINE HCL [Concomitant]

REACTIONS (6)
  - BACK PAIN [None]
  - CEREBROVASCULAR ACCIDENT [None]
  - DRUG INEFFECTIVE [None]
  - DYSSTASIA [None]
  - MYALGIA [None]
  - PAIN IN EXTREMITY [None]
